FAERS Safety Report 19381409 (Version 2)
Quarter: 2021Q3

REPORT INFORMATION
  Report Type: Spontaneous
  Country: US (occurrence: US)
  Receive Date: 20210607
  Receipt Date: 20210727
  Transmission Date: 20211014
  Serious: Yes (Other)
  Sender: FDA-Public Use
  Company Number: US-PFIZER INC-2021595799

PATIENT
  Age: 43 Year
  Sex: Female

DRUGS (4)
  1. EPIDIOLEX [Concomitant]
     Active Substance: CANNABIDIOL
     Indication: EPILEPSY
     Dosage: 7 ML, 2X/DAY (6:30 AM AND 6:30 PM.)
     Dates: start: 202009
  2. CELONTIN [Suspect]
     Active Substance: METHSUXIMIDE
     Indication: EPILEPSY
     Dosage: 300 MG, 2X/DAY (TWICE DAILY)
     Route: 048
     Dates: start: 20100101
  3. CELONTIN [Suspect]
     Active Substance: METHSUXIMIDE
     Dosage: TOOK ONE OF THE TWO DOSES AWAY FOR A WEEK
     Route: 048
  4. FELBAMATE. [Concomitant]
     Active Substance: FELBAMATE
     Indication: EPILEPSY
     Dosage: 400 MG, 4X/DAY (6:30 AM 3 1/2 TABLETS, 3PM 3 TABLETS, 11PM 4 TABLETS)
     Dates: start: 2011

REACTIONS (3)
  - Intentional product use issue [Unknown]
  - Product supply issue [Unknown]
  - Epilepsy [Recovering/Resolving]

NARRATIVE: CASE EVENT DATE: 202104
